FAERS Safety Report 24749253 (Version 1)
Quarter: 2024Q4

REPORT INFORMATION
  Report Type: Report from Study
  Country: MX (occurrence: MX)
  Receive Date: 20241218
  Receipt Date: 20241218
  Transmission Date: 20250115
  Serious: Yes (Other)
  Sender: NOVARTIS
  Company Number: MX-002147023-NVSC2024MX105687

PATIENT
  Age: 62 Year
  Sex: Male
  Weight: 81 kg

DRUGS (8)
  1. TEGRETOL [Suspect]
     Active Substance: CARBAMAZEPINE
     Indication: Epilepsy
     Dosage: 200 MG
     Route: 048
     Dates: start: 2016, end: 2017
  2. CARBAMAZEPINE [Suspect]
     Active Substance: CARBAMAZEPINE
     Indication: Product used for unknown indication
     Dosage: 1.5 MG, TID
     Route: 048
     Dates: start: 2018
  3. CARBAMAZEPINE [Suspect]
     Active Substance: CARBAMAZEPINE
     Dosage: 1 DOSAGE FORM, TID
     Route: 048
  4. CARBAMAZEPINE [Suspect]
     Active Substance: CARBAMAZEPINE
     Dosage: 1 DOSAGE FORM ( 1 DOSAGE FORM OF 200 MG)
     Route: 065
  5. TEGRETOL [Suspect]
     Active Substance: CARBAMAZEPINE
     Indication: Cerebral cyst
     Dosage: 200 MG
     Route: 048
     Dates: start: 2016
  6. TEGRETOL [Suspect]
     Active Substance: CARBAMAZEPINE
     Dosage: 4.5 DOSAGE FORM, QD (1.5 DOSAGE FORM )
     Route: 048
     Dates: start: 2018
  7. TEGRETOL [Suspect]
     Active Substance: CARBAMAZEPINE
     Dosage: 3 DOSAGE FORM, QD
     Route: 048
     Dates: start: 2018
  8. LEVETIRACETAM [Suspect]
     Active Substance: LEVETIRACETAM
     Indication: Product used for unknown indication
     Dosage: UNK
     Route: 065

REACTIONS (10)
  - Seizure [Recovered/Resolved]
  - Syncope [Unknown]
  - Epilepsy [Unknown]
  - Seizure [Unknown]
  - Dizziness [Unknown]
  - Hypoacusis [Unknown]
  - Ageusia [Unknown]
  - Malaise [Unknown]
  - COVID-19 [Recovered/Resolved]
  - Off label use [Unknown]

NARRATIVE: CASE EVENT DATE: 20210301
